FAERS Safety Report 7655776-7 (Version None)
Quarter: 2011Q3

REPORT INFORMATION
  Report Type: 
  Country: None (occurrence: None)
  Receive Date: 20110804
  Receipt Date: 20110729
  Transmission Date: 20111222
  Serious: Yes (Death)
  Sender: FDA-Public Use
  Company Number: US-CELGENEUS-163-21880-11062635

PATIENT
  Sex: Female

DRUGS (15)
  1. REVLIMID [Suspect]
     Dosage: 10 MILLIGRAM
     Route: 048
     Dates: start: 20110516, end: 20110601
  2. DOCUSATE SODIUM [Concomitant]
     Indication: CONSTIPATION
     Dosage: 100 MILLIGRAM
     Route: 048
  3. COMBIVENT [Concomitant]
     Dosage: 103-18MCG
     Route: 055
  4. POTASSIUM CHLORIDE [Concomitant]
     Dosage: 7.5 MILLILITER
     Route: 048
  5. ASPIRIN [Concomitant]
     Dosage: 81 MILLIGRAM
     Route: 048
  6. MIRTAZAPINE [Concomitant]
     Dosage: 15 MILLIGRAM
     Route: 048
  7. FUROSEMIDE [Concomitant]
     Dosage: 20MG ALTERNATING WITH 40MG
     Route: 048
  8. MILK OF MAGNESIA TAB [Concomitant]
     Indication: CONSTIPATION
     Dosage: 30 MILLILITER
     Route: 065
  9. DIGOXIN [Concomitant]
     Dosage: TAKE 2 THE FIRST DAY + THEN 1 QD THEREAFTER
     Route: 048
  10. CITALOPRAM [Concomitant]
     Dosage: 30 MILLIGRAM
     Route: 048
  11. AMOXICILLIN [Concomitant]
     Dosage: 2000 MILLIGRAM
     Route: 065
  12. MULTI-VITAMINS [Concomitant]
     Dosage: 1 TABLET
     Route: 065
  13. ABSORBINE ANTIFUNGAL [Concomitant]
     Dosage: 2 PERCENT
     Route: 061
  14. SENNA [Concomitant]
     Dosage: 8.6 MILLIGRAM
     Route: 048
  15. IMODIUM MULTI-SYMPTOM RELIEF [Concomitant]
     Dosage: 2 MILLIGRAM
     Route: 065

REACTIONS (1)
  - CARDIAC FAILURE CONGESTIVE [None]
